FAERS Safety Report 5619956-4 (Version None)
Quarter: 2008Q1

REPORT INFORMATION
  Report Type: 
  Country: None (occurrence: None)
  Receive Date: 20080208
  Receipt Date: 20071024
  Transmission Date: 20080703
  Serious: No
  Sender: FDA-Public Use
  Company Number: US-ABBOTT-07P-163-0422433-00

PATIENT
  Age: 50 Year
  Sex: Male
  Weight: 80.812 kg

DRUGS (3)
  1. VICODIN [Suspect]
     Indication: DRUG USE FOR UNKNOWN INDICATION
  2. LUNESTA [Suspect]
     Indication: INSOMNIA
     Route: 048
     Dates: start: 20071003, end: 20071003
  3. PROMETHAZINE HCL [Concomitant]
     Indication: DRUG USE FOR UNKNOWN INDICATION

REACTIONS (1)
  - NAUSEA [None]
